FAERS Safety Report 8795019 (Version 3)
Quarter: 2014Q3

REPORT INFORMATION
  Report Type: Report from Study
  Country: US (occurrence: US)
  Receive Date: 20120917
  Receipt Date: 20140902
  Transmission Date: 20150326
  Serious: Yes (Death)
  Sender: FDA-Public Use
  Company Number: US-ROCHE-1129190

PATIENT
  Sex: Male

DRUGS (2)
  1. NAVELBINE [Concomitant]
     Active Substance: VINORELBINE TARTRATE
  2. AVASTIN [Suspect]
     Active Substance: BEVACIZUMAB
     Indication: BLADDER CANCER
     Route: 042

REACTIONS (1)
  - Bladder cancer [Fatal]
